FAERS Safety Report 20485416 (Version 1)
Quarter: 2022Q1

REPORT INFORMATION
  Report Type: Spontaneous
  Country: BR (occurrence: BR)
  Receive Date: 20220217
  Receipt Date: 20220217
  Transmission Date: 20220423
  Serious: Yes (Death, Other)
  Sender: FDA-Public Use
  Company Number: BR-AMGEN-BRASP2022026719

PATIENT

DRUGS (2)
  1. PANITUMUMAB [Suspect]
     Active Substance: PANITUMUMAB
     Indication: Product used for unknown indication
     Dosage: UNK
     Route: 065
  2. FILGRASTIM [Suspect]
     Active Substance: FILGRASTIM
     Indication: Product used for unknown indication
     Dosage: UNK
     Route: 065

REACTIONS (14)
  - Death [Fatal]
  - Rash pustular [Unknown]
  - Palmar-plantar erythrodysaesthesia syndrome [Unknown]
  - Paronychia [Unknown]
  - Xerosis [Unknown]
  - Pyogenic granuloma [Unknown]
  - Skin fissures [Unknown]
  - Onycholysis [Unknown]
  - Hospitalisation [Unknown]
  - Diagnostic procedure [Unknown]
  - Rash [Unknown]
  - Trichomegaly [Unknown]
  - Hypertrichosis [Unknown]
  - Mucocutaneous disorder [Unknown]
